FAERS Safety Report 6717373-7 (Version None)
Quarter: 2010Q2

REPORT INFORMATION
  Report Type: 
  Country: None (occurrence: None)
  Receive Date: 20100505
  Receipt Date: 20100430
  Transmission Date: 20101027
  Serious: Yes (Death, Hospitalization, Other)
  Sender: FDA-Public Use
  Company Number: 2010SP018895

PATIENT
  Age: 46 Year
  Sex: Male

DRUGS (13)
  1. DEXAMETHASONE [Suspect]
     Indication: FATIGUE
     Dosage: 2 MG;PO, 4 MG;PO
     Route: 048
  2. DEXAMETHASONE [Suspect]
     Indication: ROUTINE HEALTH MAINTENANCE
     Dosage: 2 MG;PO, 4 MG;PO
     Route: 048
  3. CARBOPLATIN [Suspect]
     Indication: CHEMOTHERAPY
  4. MOVICOL (MOVICOL 01749801/) [Suspect]
     Indication: CONSTIPATION
     Dosage: 6 DF
  5. NAPROXEN [Suspect]
     Indication: PAIN
     Dosage: 500 MG;BID
  6. DIAMORPHINE (DIAMORPHINE) [Suspect]
     Indication: PAIN
     Dosage: SC
     Route: 058
  7. FLUDROCORTISONE ACETATE [Suspect]
     Indication: HYPONATRAEMIA
  8. HYDROCORTISONE [Suspect]
     Indication: DRUG USE FOR UNKNOWN INDICATION
     Dosage: IV
     Route: 042
  9. KETAMINE HCL [Suspect]
     Indication: ANALGESIC THERAPY
  10. MIDAZOLAM (MIDAZOLAM /00634101/) [Suspect]
     Indication: PAIN
     Dosage: SC
     Route: 058
  11. MORPHINE [Suspect]
     Indication: PAIN
  12. WARFARIN SODIUM [Suspect]
     Indication: DEEP VEIN THROMBOSIS
  13. WARFARIN SODIUM [Suspect]
     Indication: PULMONARY EMBOLISM

REACTIONS (16)
  - ADRENAL INSUFFICIENCY [None]
  - BACK PAIN [None]
  - CONSTIPATION [None]
  - DEEP VEIN THROMBOSIS [None]
  - GENERAL PHYSICAL HEALTH DETERIORATION [None]
  - HAEMOGLOBIN DECREASED [None]
  - HYPOTENSION [None]
  - INTERNATIONAL NORMALISED RATIO INCREASED [None]
  - MALIGNANT NEOPLASM PROGRESSION [None]
  - METASTASES TO ADRENALS [None]
  - METASTASES TO LIVER [None]
  - METASTASES TO SKIN [None]
  - PULMONARY EMBOLISM [None]
  - RETROPERITONEAL LYMPHADENOPATHY [None]
  - TACHYCARDIA [None]
  - TUMOUR HAEMORRHAGE [None]
